FAERS Safety Report 10133791 (Version 3)
Quarter: 2015Q1

REPORT INFORMATION
  Report Type: Spontaneous
  Country: US (occurrence: US)
  Receive Date: 20140428
  Receipt Date: 20150129
  Transmission Date: 20150720
  Serious: Yes (Disabling)
  Sender: FDA-Public Use
  Company Number: US-GILEAD-2014-0100677

PATIENT
  Age: 77 Year
  Sex: Male

DRUGS (4)
  1. LETAIRIS [Suspect]
     Active Substance: AMBRISENTAN
     Indication: PULMONARY HYPERTENSION
     Dosage: 10 MG, QD
     Route: 065
     Dates: start: 20131207
  2. LETAIRIS [Suspect]
     Active Substance: AMBRISENTAN
     Indication: CONNECTIVE TISSUE DISORDER
  3. LETAIRIS [Suspect]
     Active Substance: AMBRISENTAN
     Indication: PULMONARY FIBROSIS
  4. ADCIRCA [Concomitant]
     Active Substance: TADALAFIL

REACTIONS (4)
  - Malaise [Unknown]
  - Eating disorder [Unknown]
  - Condition aggravated [Unknown]
  - Wheelchair user [Unknown]
